FAERS Safety Report 8875543 (Version 2)
Quarter: 2012Q4

REPORT INFORMATION
  Report Type: Report from Study
  Country: CL (occurrence: CL)
  Receive Date: 20121029
  Receipt Date: 20121107
  Transmission Date: 20130627
  Serious: Yes (Hospitalization)
  Sender: FDA-Public Use
  Company Number: CL-US-EMD SERONO, INC.-7170246

PATIENT
  Age: 12 Year
  Sex: Male

DRUGS (2)
  1. SAIZEN [Suspect]
     Indication: PRODUCT USED FOR UNKNOWN INDICATION
     Route: 058
     Dates: start: 20091125
  2. SAIZEN [Suspect]
     Route: 058
     Dates: start: 20100726, end: 20120605

REACTIONS (1)
  - Craniopharyngioma [Unknown]
